FAERS Safety Report 25033253 (Version 2)
Quarter: 2025Q3

REPORT INFORMATION
  Report Type: Spontaneous
  Country: US (occurrence: US)
  Receive Date: 20250303
  Receipt Date: 20250905
  Transmission Date: 20251020
  Serious: Yes (Hospitalization)
  Sender: DOMPE FARMACEUTICI
  Company Number: US-FARMAPROD-202501-0269

PATIENT
  Age: 93 Year
  Sex: Female

DRUGS (2)
  1. OXERVATE [Suspect]
     Active Substance: CENEGERMIN-BKBJ
     Indication: Neurotrophic keratopathy
     Route: 047
     Dates: start: 20250114
  2. OXERVATE [Suspect]
     Active Substance: CENEGERMIN-BKBJ

REACTIONS (5)
  - Vertigo [Recovered/Resolved]
  - Vision blurred [Unknown]
  - Eye pain [Unknown]
  - Product dose omission issue [Not Recovered/Not Resolved]
  - Eyelid pain [Unknown]

NARRATIVE: CASE EVENT DATE: 20250215
